FAERS Safety Report 17503177 (Version 1)
Quarter: 2020Q1

REPORT INFORMATION
  Report Type: Spontaneous
  Country: US (occurrence: US)
  Receive Date: 20200305
  Receipt Date: 20200305
  Transmission Date: 20200409
  Serious: No
  Sender: FDA-Public Use
  Company Number: US-ROCHE-2283084

PATIENT
  Sex: Female

DRUGS (2)
  1. XOLAIR [Suspect]
     Active Substance: OMALIZUMAB
     Dosage: VIAL
     Route: 058
  2. XOLAIR [Suspect]
     Active Substance: OMALIZUMAB
     Indication: CHRONIC SPONTANEOUS URTICARIA
     Dosage: BENEATH THE SKIN, PRE FILLED SYRINGE
     Route: 058
     Dates: start: 20190308, end: 20190308

REACTIONS (5)
  - Chronic spontaneous urticaria [Unknown]
  - Erythema [Unknown]
  - Pruritus [Unknown]
  - Drug ineffective [Unknown]
  - Needle issue [Unknown]
